FAERS Safety Report 13898415 (Version 2)
Quarter: 2017Q3

REPORT INFORMATION
  Report Type: Spontaneous
  Country: DE (occurrence: DE)
  Receive Date: 20170824
  Receipt Date: 20170919
  Transmission Date: 20171127
  Serious: Yes (Disabling, Other)
  Sender: FDA-Public Use
  Company Number: DE-AMGEN-DEUSP2017126677

PATIENT
  Age: 73 Year
  Sex: Female

DRUGS (15)
  1. FORMOTEROL AL [Concomitant]
     Dosage: UNK
     Dates: start: 20170626
  2. OPIPRAM [Concomitant]
     Active Substance: OPIPRAMOL HYDROCHLORIDE
     Dosage: UNK
     Dates: start: 20170504
  3. CALCIUM [Concomitant]
     Active Substance: CALCIUM
     Dosage: UNK
  4. LOPERAMID STADA [Concomitant]
     Dosage: UNK
     Dates: start: 20170627
  5. MAGNESIUM [Concomitant]
     Active Substance: MAGNESIUM
     Dosage: UNK
  6. THYRONAJOD [Concomitant]
     Active Substance: LEVOTHYROXINE SODIUM\POTASSIUM IODIDE
     Dosage: UNK
     Dates: start: 20170626
  7. VALSACOR COMP [Concomitant]
     Dosage: UNK
     Dates: start: 20170826
  8. BERODUAL N [Concomitant]
     Active Substance: FENOTEROL HYDROBROMIDE\IPRATROPIUM BROMIDE
     Dosage: UNK
     Dates: start: 20170626
  9. DORZOLAMID HEUMANN [Concomitant]
     Dosage: UNK
     Dates: start: 20170606
  10. PROLIA [Suspect]
     Active Substance: DENOSUMAB
     Indication: PRODUCT USED FOR UNKNOWN INDICATION
     Dosage: 60 MG,(ONE TIME ONLY)
     Route: 058
  11. MODAFINILO AUROBINDO [Concomitant]
     Dosage: UNK
     Dates: start: 20170504
  12. VOLON A [Concomitant]
     Dosage: UNK
     Dates: start: 20170627
  13. DEKRISTOL [Concomitant]
     Active Substance: CHOLECALCIFEROL
     Dosage: UNK
     Dates: start: 20170428
  14. INNOHEP [Concomitant]
     Active Substance: TINZAPARIN SODIUM
     Dosage: UNK
     Dates: start: 20170714
  15. TILIDIN AL COMP [Concomitant]
     Dosage: UNK
     Dates: start: 20170626

REACTIONS (5)
  - Dizziness [Not Recovered/Not Resolved]
  - Muscle spasms [Not Recovered/Not Resolved]
  - Altered state of consciousness [Not Recovered/Not Resolved]
  - Headache [Not Recovered/Not Resolved]
  - Musculoskeletal stiffness [Not Recovered/Not Resolved]

NARRATIVE: CASE EVENT DATE: 20170726
